FAERS Safety Report 9460333 (Version 1)
Quarter: 2013Q3

REPORT INFORMATION
  Report Type: Spontaneous
  Country: US (occurrence: None)
  Receive Date: 20130808
  Receipt Date: 20130808
  Transmission Date: 20140515
  Serious: Yes (Hospitalization)
  Sender: FDA-Public Use
  Company Number: GGEL20110800778

PATIENT
  Age: 73 Year
  Sex: Female

DRUGS (5)
  1. LEVOFLOXACIN (LEVOFLOXACIN HEMIHYDRATE) [Suspect]
  2. ASPIRIN (ACETYLSALICYLIC ACID) [Concomitant]
  3. RANITIDINE [Concomitant]
  4. ALPRAZOLAM (ALPRAZOLAM) [Concomitant]
  5. METHADONE (METHADONE) [Concomitant]

REACTIONS (4)
  - Epistaxis [None]
  - Petechiae [None]
  - Contusion [None]
  - Thrombocytopenia [None]
